FAERS Safety Report 4445802-0 (Version None)
Quarter: 2004Q3

REPORT INFORMATION
  Report Type: 
  Country: None (occurrence: None)
  Receive Date: 20040903
  Receipt Date: 20040824
  Transmission Date: 20050211
  Serious: Yes (Hospitalization)
  Sender: FDA-Public Use
  Company Number: 2004-BP-07359AU

PATIENT
  Age: 56 Year
  Sex: Female

DRUGS (5)
  1. SPIRIVA [Suspect]
     Dosage: 36 MCG (18 MCG, 2 DAILY) PO
     Route: 048
  2. SALBUTAMOL (SALBUTAMOL) (NR) [Concomitant]
  3. ALENDRONATE SODIUM (ALENDRONATE SODIUM) (NR) [Concomitant]
  4. PAROXETINE (PAROXETINE) (NR) [Concomitant]
  5. SERETIDE (NR) [Concomitant]

REACTIONS (2)
  - CONSTIPATION [None]
  - PERITONITIS [None]
